FAERS Safety Report 19056817 (Version 1)
Quarter: 2021Q1

REPORT INFORMATION
  Report Type: Spontaneous
  Country: CA (occurrence: CA)
  Receive Date: 20210325
  Receipt Date: 20210325
  Transmission Date: 20210420
  Serious: Yes (Other)
  Sender: FDA-Public Use
  Company Number: CA-JNJFOC-20210338844

PATIENT
  Age: 18 Year
  Sex: Female
  Weight: 134 kg

DRUGS (2)
  1. PREDNISONE. [Concomitant]
     Active Substance: PREDNISONE
     Route: 047
  2. REMICADE [Suspect]
     Active Substance: INFLIXIMAB
     Indication: UVEITIS
     Route: 042

REACTIONS (7)
  - Off label use [Unknown]
  - Product use in unapproved indication [Unknown]
  - Poor venous access [Unknown]
  - Intentional product use issue [Unknown]
  - Incorrect dose administered [Unknown]
  - SARS-CoV-2 test positive [Unknown]
  - Blood pressure fluctuation [Unknown]
